FAERS Safety Report 15389732 (Version 1)
Quarter: 2018Q3

REPORT INFORMATION
  Report Type: Spontaneous
  Country: US (occurrence: US)
  Receive Date: 20180907
  Receipt Date: 20180907
  Transmission Date: 20181010
  Serious: No
  Sender: FDA-Public Use
  Company Number: None

PATIENT
  Sex: Female

DRUGS (1)
  1. BOTOX [Suspect]
     Active Substance: ONABOTULINUMTOXINA
     Dosage: ?          OTHER DOSE:155 UNITS;OTHER FREQUENCY:EVERY 90 DAYS ;?
     Route: 030
     Dates: start: 20161122

REACTIONS (1)
  - Muscle atrophy [None]
